FAERS Safety Report 21848950 (Version 2)
Quarter: 2023Q1

REPORT INFORMATION
  Report Type: Spontaneous
  Country: PT (occurrence: PT)
  Receive Date: 20230111
  Receipt Date: 20230113
  Transmission Date: 20230417
  Serious: Yes (Hospitalization, Other)
  Sender: FDA-Public Use
  Company Number: PT-GLAXOSMITHKLINE-PT2022EME114711

PATIENT

DRUGS (1)
  1. BUPROPION HYDROCHLORIDE [Suspect]
     Active Substance: BUPROPION HYDROCHLORIDE
     Indication: Dementia
     Dosage: 1 DF, QD
     Route: 048
     Dates: start: 20220717, end: 20220725

REACTIONS (13)
  - Physical assault [Recovered/Resolved]
  - Suicide attempt [Recovered/Resolved]
  - Aggression [Recovered/Resolved]
  - Psychotic disorder [Recovered/Resolved]
  - Pyrexia [Recovered/Resolved]
  - Peripheral swelling [Recovering/Resolving]
  - Hypervigilance [Recovered/Resolved]
  - Glassy eyes [Recovered/Resolved]
  - Blood pressure increased [Recovered/Resolved]
  - Agitation [Recovering/Resolving]
  - Apathy [Not Recovered/Not Resolved]
  - Time perception altered [Not Recovered/Not Resolved]
  - Product use in unapproved indication [Recovered/Resolved]

NARRATIVE: CASE EVENT DATE: 20220701
